FAERS Safety Report 5352311-3 (Version None)
Quarter: 2007Q2

REPORT INFORMATION
  Report Type: 
  Country: None (occurrence: None)
  Receive Date: 20070607
  Receipt Date: 20070607
  Transmission Date: 20071010
  Serious: Yes (Other)
  Sender: FDA-Public Use
  Company Number: None

PATIENT
  Age: 63 Year
  Sex: Female
  Weight: 79.3795 kg

DRUGS (1)
  1. CHANTIX [Suspect]
     Indication: SMOKING CESSATION THERAPY
     Dosage: 1 TABLET 1/DAY THEN 2/DAY PO
     Route: 048
     Dates: start: 20070507, end: 20070601

REACTIONS (5)
  - CONFUSIONAL STATE [None]
  - DEPRESSION [None]
  - LETHARGY [None]
  - MEMORY IMPAIRMENT [None]
  - NOCTURIA [None]
